FAERS Safety Report 14151061 (Version 1)
Quarter: 2017Q4

REPORT INFORMATION
  Report Type: Spontaneous
  Country: RU (occurrence: RU)
  Receive Date: 20171102
  Receipt Date: 20171102
  Transmission Date: 20180321
  Serious: Yes (Other)
  Sender: FDA-Public Use
  Company Number: RU-ASTRAZENECA-2017SF09935

PATIENT
  Age: 73 Year
  Sex: Female
  Weight: 67 kg

DRUGS (8)
  1. MONOPRIL [Concomitant]
     Active Substance: FOSINOPRIL SODIUM
  2. CONCOR [Concomitant]
     Active Substance: BISOPROLOL FUMARATE
  3. AMLODIPINE [Concomitant]
     Active Substance: AMLODIPINE BESYLATE
  4. BRILINTA [Suspect]
     Active Substance: TICAGRELOR
     Indication: MYOCARDIAL INFARCTION
     Dosage: 90 MG, A HALF OF TABLET (45 MG), BID FOR 2 DAYS
     Route: 048
     Dates: start: 201710
  5. THROMBO ASS [Concomitant]
     Active Substance: ASPIRIN
  6. INDAPAMIDE. [Concomitant]
     Active Substance: INDAPAMIDE
  7. BRILINTA [Suspect]
     Active Substance: TICAGRELOR
     Indication: MYOCARDIAL INFARCTION
     Route: 048
     Dates: start: 20170720, end: 20171020
  8. ATORVASTATIN [Concomitant]
     Active Substance: ATORVASTATIN

REACTIONS (5)
  - Intentional product misuse [Unknown]
  - Cerebrovascular accident [Recovering/Resolving]
  - Myalgia [Recovered/Resolved]
  - Dizziness [Not Recovered/Not Resolved]
  - Pruritus [Recovered/Resolved]

NARRATIVE: CASE EVENT DATE: 20170720
